FAERS Safety Report 19047317 (Version 2)
Quarter: 2021Q2

REPORT INFORMATION
  Report Type: Spontaneous
  Country: US (occurrence: US)
  Receive Date: 20210323
  Receipt Date: 20210405
  Transmission Date: 20210717
  Serious: Yes (Life-Threatening, Hospitalization, Other)
  Sender: FDA-Public Use
  Company Number: US-BAXTER-2021BAX005241

PATIENT
  Age: 36 Year
  Sex: Female

DRUGS (1)
  1. LIDOCAINE HYDROCHLORIDE AND 5% DEXTROSE INJECTION, USP [Suspect]
     Active Substance: LIDOCAINE HYDROCHLORIDE
     Indication: LIPOSUCTION
     Dosage: THIS PATIENT RECEIVED 30MG/KG
     Route: 058

REACTIONS (8)
  - Dyspnoea [Recovering/Resolving]
  - Toxicity to various agents [Recovering/Resolving]
  - Tremor [Recovering/Resolving]
  - Cardiotoxicity [Recovering/Resolving]
  - Drug level increased [Recovering/Resolving]
  - Electrocardiogram QRS complex shortened [Recovering/Resolving]
  - Incorrect route of product administration [Recovered/Resolved]
  - Pulse absent [Recovering/Resolving]
